FAERS Safety Report 24739165 (Version 3)
Quarter: 2025Q1

REPORT INFORMATION
  Report Type: Spontaneous
  Country: US (occurrence: US)
  Receive Date: 20241216
  Receipt Date: 20250128
  Transmission Date: 20250409
  Serious: Yes (Other)
  Sender: PFIZER
  Company Number: US-PFIZER INC-202400304616

PATIENT
  Age: 63 Year
  Sex: Female
  Weight: 104.33 kg

DRUGS (28)
  1. TUKYSA [Suspect]
     Active Substance: TUCATINIB
     Indication: Breast cancer female
     Dosage: 150 MG, 2X/DAY
     Route: 048
  2. TUKYSA [Suspect]
     Active Substance: TUCATINIB
     Dosage: 150 MG; 2 TABLETS TWICE DAILY
     Dates: start: 20241121
  3. CAPECITABINE [Suspect]
     Active Substance: CAPECITABINE
  4. CAPECITABINE [Suspect]
     Active Substance: CAPECITABINE
     Dates: start: 20241206
  5. CAPECITABINE [Suspect]
     Active Substance: CAPECITABINE
     Dosage: ROUND TO 2 TABLETS 2 TIMES A DAY
  6. MORPHINE [Concomitant]
     Active Substance: MORPHINE
     Indication: Breakthrough pain
     Dosage: UNK, DAILY
  7. MORPHINE [Concomitant]
     Active Substance: MORPHINE
     Dosage: 30 MG TABLET TIME RELEASE TAKES ONCE AT NIGHT BY MOUTH
     Route: 048
     Dates: start: 202312
  8. MORPHINE [Concomitant]
     Active Substance: MORPHINE
     Dates: start: 202403
  9. LOPERAMIDE [Concomitant]
     Active Substance: LOPERAMIDE
  10. SYMBICORT [Concomitant]
     Active Substance: BUDESONIDE\FORMOTEROL FUMARATE DIHYDRATE
     Indication: Dyspnoea
     Dosage: UNK, DAILY
  11. SYMBICORT [Concomitant]
     Active Substance: BUDESONIDE\FORMOTEROL FUMARATE DIHYDRATE
     Dosage: 4.5 MCG ACTUATION INHALER 2 PUFFS BY MOUTH TWICE A DAY
     Dates: start: 20240708
  12. FAMOTIDINE [Concomitant]
     Active Substance: FAMOTIDINE
     Indication: Abdominal discomfort
     Dosage: 20 MG; SUPPOSED TO TAKE ONE TWICE A DAY BY MOUTH
     Route: 048
     Dates: start: 20241202
  13. METHOCARBAMOL [Concomitant]
     Active Substance: METHOCARBAMOL
     Indication: Bone cancer
     Dosage: 750 MG 3 TIMES A DAY BY MOUTH
     Route: 048
     Dates: start: 202312
  14. UREACIN [Concomitant]
     Dosage: ONCE A DAY TOPICALLY
     Route: 061
     Dates: start: 20241113
  15. GABAPENTIN [Concomitant]
     Active Substance: GABAPENTIN
     Indication: Nerve injury
     Dosage: 300 MG CAPSULE BY MOUTH 3 TIMES A DAY
     Route: 048
     Dates: start: 202401
  16. DULOXETINE [Concomitant]
     Active Substance: DULOXETINE
     Indication: Anxiety
     Dosage: 60 MG CAPSULE BY MOUTH ONCE A DAY
     Dates: start: 202402
  17. DULOXETINE [Concomitant]
     Active Substance: DULOXETINE
     Indication: Nerve injury
  18. LEVOTHYROXINE [Concomitant]
     Active Substance: LEVOTHYROXINE
     Indication: Hypothyroidism
     Dates: start: 202312
  19. OZEMPIC [Concomitant]
     Active Substance: SEMAGLUTIDE
     Indication: Diabetes mellitus
     Dates: start: 202409
  20. ONDANSETRON [Concomitant]
     Active Substance: ONDANSETRON
     Indication: Nausea
     Route: 048
     Dates: start: 202312
  21. PROCHLORPERAZINE [Concomitant]
     Active Substance: PROCHLORPERAZINE
     Indication: Nausea
     Route: 048
  22. MONTELUKAST [Concomitant]
     Active Substance: MONTELUKAST
     Indication: Hypersensitivity
     Dosage: 10 MG BY MOUTH ONCE A DAY IN THE EVENING
     Route: 048
     Dates: start: 202401
  23. ALBUTEROL [Concomitant]
     Active Substance: ALBUTEROL
     Indication: Dyspnoea
     Route: 048
     Dates: start: 202408
  24. METFORMIN [Concomitant]
     Active Substance: METFORMIN HYDROCHLORIDE
     Indication: Diabetes mellitus
     Dosage: 500 MG 1 TABLET BY MOUTH DAILY WITH A MEAL
     Route: 048
     Dates: start: 202408
  25. HYDROCHLOROTHIAZIDE [Concomitant]
     Active Substance: HYDROCHLOROTHIAZIDE
     Indication: Blood pressure measurement
     Dosage: 12.5 MG 1 CAPSULE BY MOUTH A DAY
     Route: 048
     Dates: start: 20240716
  26. CETIRIZINE [Concomitant]
     Active Substance: CETIRIZINE HYDROCHLORIDE
     Indication: Hypersensitivity
     Dosage: 10 MG TABLET ONCE A DAY MY MOUTH
     Route: 048
     Dates: start: 20240708
  27. TAXOL [Concomitant]
     Active Substance: PACLITAXEL
  28. BENADRYL [Concomitant]
     Active Substance: DIPHENHYDRAMINE HYDROCHLORIDE

REACTIONS (6)
  - Back disorder [Unknown]
  - Off label use [Unknown]
  - Product use issue [Unknown]
  - Nausea [Recovering/Resolving]
  - Diarrhoea [Unknown]
  - Oral discomfort [Unknown]
